FAERS Safety Report 8503289 (Version 2)
Quarter: 2013Q1

REPORT INFORMATION
  Report Type: Report from Study
  Country: CN (occurrence: CN)
  Receive Date: 20120411
  Receipt Date: 20130205
  Transmission Date: 20140127
  Serious: Yes (Death)
  Sender: FDA-Public Use
  Company Number: PHHO2012CN005586

PATIENT
  Age: 76 Year
  Sex: Female
  Weight: 68.4 kg

DRUGS (2)
  1. ALISKIREN [Suspect]
     Indication: CARDIOVASCULAR DISORDER
     Dosage: 300 MG, UNK
     Route: 048
     Dates: start: 20100624, end: 20111226
  2. NOVOLIN R [Concomitant]
     Indication: DIABETES MELLITUS
     Dosage: 10 U TID

REACTIONS (1)
  - Death [Fatal]
